FAERS Safety Report 21140124 (Version 1)
Quarter: 2022Q3

REPORT INFORMATION
  Report Type: Spontaneous
  Country: US (occurrence: US)
  Receive Date: 20220728
  Receipt Date: 20220728
  Transmission Date: 20221027
  Serious: Yes (Other)
  Sender: FDA-Public Use
  Company Number: US-SA-SAC20220722001476

PATIENT
  Age: 75 Year
  Sex: Female

DRUGS (1)
  1. ZANTAC [Suspect]
     Active Substance: RANITIDINE HYDROCHLORIDE
     Dosage: UNK, QD
     Dates: start: 199501, end: 201901

REACTIONS (3)
  - Renal cancer stage IV [Recovering/Resolving]
  - Lung carcinoma cell type unspecified stage IV [Recovering/Resolving]
  - Osteosarcoma [Recovering/Resolving]

NARRATIVE: CASE EVENT DATE: 20170901
